FAERS Safety Report 12836925 (Version 8)
Quarter: 2018Q1

REPORT INFORMATION
  Report Type: Spontaneous
  Country: US (occurrence: US)
  Receive Date: 20161011
  Receipt Date: 20180306
  Transmission Date: 20180508
  Serious: Yes (Hospitalization, Other)
  Sender: FDA-Public Use
  Company Number: US-009507513-1610USA003757

PATIENT
  Sex: Female
  Weight: 65.76 kg

DRUGS (3)
  1. NUVARING [Suspect]
     Active Substance: ETHINYL ESTRADIOL\ETONOGESTREL
     Dosage: 1 DF, UNK
     Route: 067
     Dates: start: 20100303, end: 20100624
  2. MIRENA [Suspect]
     Active Substance: LEVONORGESTREL
     Indication: CONTRACEPTION
     Route: 015
  3. NUVARING [Suspect]
     Active Substance: ETHINYL ESTRADIOL\ETONOGESTREL
     Indication: CONTRACEPTION
     Dosage: 1 DF,.12-0.015 MG/24 HR; QM 3 WEEKS IN/1 WEEK OUT
     Route: 067
     Dates: start: 201306, end: 20141019

REACTIONS (28)
  - Nephrolithiasis [Unknown]
  - Pulmonary mass [Unknown]
  - Rhinitis allergic [Unknown]
  - Prothrombin time prolonged [Unknown]
  - Back pain [Unknown]
  - Ear pain [Unknown]
  - Anxiety [Unknown]
  - Myalgia [Unknown]
  - Cervix disorder [Unknown]
  - Paraesthesia [Unknown]
  - Swelling [Unknown]
  - Asthma [Not Recovered/Not Resolved]
  - Fatigue [Not Recovered/Not Resolved]
  - Hypersensitivity [Unknown]
  - Raynaud^s phenomenon [Unknown]
  - Pulmonary embolism [Recovering/Resolving]
  - Blood immunoglobulin M increased [Unknown]
  - Tonsillectomy [Unknown]
  - Nephrolithiasis [Unknown]
  - Vitamin B12 deficiency [Unknown]
  - Uterine leiomyoma [Unknown]
  - Deep vein thrombosis [Recovering/Resolving]
  - Dyspnoea [Unknown]
  - Pulmonary embolism [Recovered/Resolved]
  - Haemorrhage [Unknown]
  - Pain in extremity [Unknown]
  - Menstruation delayed [Unknown]
  - Headache [Unknown]

NARRATIVE: CASE EVENT DATE: 2011
